FAERS Safety Report 4501054-4 (Version None)
Quarter: 2004Q4

REPORT INFORMATION
  Report Type: 
  Country: None (occurrence: None)
  Receive Date: 20041115
  Receipt Date: 20041105
  Transmission Date: 20050328
  Serious: Yes (Other)
  Sender: FDA-Public Use
  Company Number: US-BRISTOL-MYERS SQUIBB COMPANY-12760310

PATIENT
  Age: 28 Year
  Sex: Female

DRUGS (6)
  1. SERZONE [Suspect]
     Indication: DEPRESSION
  2. TRAZODONE HCL [Concomitant]
     Indication: INSOMNIA
  3. HALDOL [Concomitant]
     Indication: HALLUCINATION, AUDITORY
  4. HALDOL [Concomitant]
     Indication: DEPRESSION
  5. PROZAC [Concomitant]
  6. LORTAB [Concomitant]

REACTIONS (2)
  - HEPATIC ENZYME INCREASED [None]
  - HEPATIC STEATOSIS [None]
